FAERS Safety Report 9007053 (Version 1)
Quarter: 2013Q1

REPORT INFORMATION
  Report Type: Report from Study
  Country: US (occurrence: US)
  Receive Date: 20130110
  Receipt Date: 20130110
  Transmission Date: 20140127
  Serious: Yes (Other)
  Sender: FDA-Public Use
  Company Number: US-ABBOTT-13P-163-1031051-00

PATIENT
  Age: 44 Year
  Sex: Male

DRUGS (2)
  1. HUMIRA [Suspect]
     Indication: CROHN^S DISEASE
     Dates: start: 2010, end: 20120909
  2. HUMIRA [Suspect]
     Dosage: 160 MG LOADING DOSE
     Dates: start: 20121231

REACTIONS (2)
  - Hidradenitis [Unknown]
  - Dermal cyst [Unknown]
